FAERS Safety Report 8158666 (Version 2)
Quarter: 2013Q3

REPORT INFORMATION
  Report Type: Spontaneous
  Country: US (occurrence: US)
  Receive Date: 20110927
  Receipt Date: 20130814
  Transmission Date: 20140515
  Serious: Yes (Hospitalization)
  Sender: FDA-Public Use
  Company Number: US-GLAXOSMITHKLINE-A0893384A

PATIENT
  Age: 71 Year
  Sex: Female
  Weight: 136.4 kg

DRUGS (1)
  1. AVANDIA [Suspect]
     Indication: DIABETES MELLITUS
     Route: 048
     Dates: start: 20031017, end: 20051203

REACTIONS (5)
  - Cardiac disorder [Unknown]
  - Cardiovascular disorder [Unknown]
  - Aortic stenosis [Unknown]
  - Pulmonary hypertension [Unknown]
  - Atrial fibrillation [Unknown]
